FAERS Safety Report 18882738 (Version 1)
Quarter: 2021Q1

REPORT INFORMATION
  Report Type: Spontaneous
  Country: US (occurrence: US)
  Receive Date: 20210212
  Receipt Date: 20210212
  Transmission Date: 20210420
  Serious: No
  Sender: FDA-Public Use
  Company Number: US-SA-2021SA038907

PATIENT
  Sex: Male

DRUGS (1)
  1. DUPIXENT [Suspect]
     Active Substance: DUPILUMAB
     Dosage: INJECT 300 MG (1 SYRINGE) UNDER THE SKIN EVERY OTHER WEEK
     Route: 058

REACTIONS (2)
  - Product dose omission issue [Unknown]
  - Therapeutic response decreased [Unknown]
